FAERS Safety Report 9602430 (Version 1)
Quarter: 2013Q4

REPORT INFORMATION
  Report Type: Spontaneous
  Country: US (occurrence: US)
  Receive Date: 20131007
  Receipt Date: 20131007
  Transmission Date: 20140711
  Serious: Yes (Other)
  Sender: FDA-Public Use
  Company Number: US-JNJFOC-20130917048

PATIENT
  Age: 6 Decade
  Sex: Male

DRUGS (1)
  1. ZYTIGA [Suspect]
     Indication: PROSTATE CANCER
     Dosage: 250 MG X 4 TABLETS
     Route: 048
     Dates: start: 201305, end: 201307

REACTIONS (3)
  - Malignant neoplasm progression [Unknown]
  - Adverse event [Unknown]
  - Pruritus [Unknown]
